FAERS Safety Report 6233705-0 (Version None)
Quarter: 2009Q2

REPORT INFORMATION
  Report Type: 
  Country: None (occurrence: None)
  Receive Date: 20090617
  Receipt Date: 20090610
  Transmission Date: 20091009
  Serious: Yes (Hospitalization, Disabling, Other)
  Sender: FDA-Public Use
  Company Number: US-MERCK-0705USA00017

PATIENT
  Age: 60 Year
  Sex: Female
  Weight: 100 kg

DRUGS (11)
  1. FOSAMAX [Suspect]
     Indication: OSTEOPOROSIS
     Route: 048
     Dates: start: 20020101, end: 20070617
  2. FOSAMAX [Suspect]
     Route: 048
     Dates: start: 19980901
  3. FOSAMAX [Suspect]
     Route: 048
     Dates: start: 19991216
  4. FOSAMAX [Suspect]
     Route: 048
     Dates: start: 19970101
  5. ALBUTEROL [Concomitant]
     Route: 065
  6. SPIRIVA [Concomitant]
     Route: 065
  7. ADVAIR HFA [Concomitant]
     Route: 065
  8. ZOCOR [Concomitant]
     Route: 048
  9. MURO 128 OPHTHALMIC OINTMENT [Concomitant]
     Route: 065
  10. LEVAQUIN [Concomitant]
     Route: 065
     Dates: start: 20061130
  11. FLONASE [Concomitant]
     Route: 065

REACTIONS (13)
  - ANAEMIA POSTOPERATIVE [None]
  - ECZEMA [None]
  - EMPHYSEMA [None]
  - FUNGAL INFECTION [None]
  - HYPOXIA [None]
  - INTERSTITIAL LUNG DISEASE [None]
  - OBLITERATIVE BRONCHIOLITIS [None]
  - ORGANISING PNEUMONIA [None]
  - OSTEOMYELITIS [None]
  - OSTEONECROSIS [None]
  - OSTEOPENIA [None]
  - RESORPTION BONE INCREASED [None]
  - TEMPOROMANDIBULAR JOINT SYNDROME [None]
